FAERS Safety Report 8133549-9 (Version None)
Quarter: 2012Q1

REPORT INFORMATION
  Report Type: 
  Country: None (occurrence: None)
  Receive Date: 20120213
  Receipt Date: 20120208
  Transmission Date: 20120608
  Serious: Yes (Death, Hospitalization)
  Sender: FDA-Public Use
  Company Number: BG-AMGEN-BGRCT2011052892

PATIENT
  Age: 77 Year
  Sex: Female

DRUGS (9)
  1. BLINDED PLACEBO [Suspect]
     Indication: CARDIAC FAILURE
     Dates: start: 20070823, end: 20110629
  2. AMLODIPINE [Concomitant]
     Dosage: 2.5 MG, UNK
  3. ACENOCOUMAROL [Concomitant]
  4. BLINDED DARBEPOETIN ALFA [Suspect]
     Dates: start: 20070823, end: 20110629
  5. BLINDED DARBEPOETIN ALFA [Suspect]
     Indication: CARDIAC FAILURE
     Dates: start: 20070823, end: 20110629
  6. BISOPROLOL FUMARATE [Concomitant]
     Dosage: 2.5 MG, UNK
  7. ATORVASTATIN [Concomitant]
     Dosage: 20 MG, UNK
  8. MALTOFER [Concomitant]
     Dosage: 100 MG, UNK
  9. FAMULTRAN [Concomitant]
     Dosage: 40 MG, UNK

REACTIONS (1)
  - CARDIAC FAILURE [None]
